FAERS Safety Report 7273205-2 (Version None)
Quarter: 2011Q1

REPORT INFORMATION
  Report Type: 
  Country: None (occurrence: None)
  Receive Date: 20110203
  Receipt Date: 20110131
  Transmission Date: 20110831
  Serious: Yes (Other)
  Sender: FDA-Public Use
  Company Number: US-PFIZER INC-2011022481

PATIENT
  Sex: Female
  Weight: 35 kg

DRUGS (9)
  1. CHANTIX [Suspect]
     Indication: SMOKING CESSATION THERAPY
     Dosage: 0.5 MG, UNK
     Route: 048
     Dates: start: 20100804, end: 20110101
  2. ALBUTEROL [Concomitant]
     Indication: DYSPNOEA
  3. NORTRIPTYLINE [Concomitant]
     Indication: DEPRESSION
     Dosage: UNK
  4. PREDNISONE [Concomitant]
     Dosage: UNK
  5. CELEXA [Concomitant]
     Indication: DEPRESSION
     Dosage: UNK
  6. FLEXERIL [Concomitant]
     Dosage: UNK
  7. HALDOL [Concomitant]
     Indication: SCHIZOAFFECTIVE DISORDER
     Dosage: UNK
  8. ALBUTEROL [Concomitant]
     Indication: WHEEZING
     Dosage: AS NEEDED
  9. AMBIEN [Concomitant]
     Dosage: UNK

REACTIONS (4)
  - SCREAMING [None]
  - ANGER [None]
  - HOMICIDAL IDEATION [None]
  - EMOTIONAL DISORDER [None]
